FAERS Safety Report 6405101-4 (Version None)
Quarter: 2009Q4

REPORT INFORMATION
  Report Type: 
  Country: None (occurrence: None)
  Receive Date: 20091019
  Receipt Date: 20091013
  Transmission Date: 20100525
  Serious: Yes (Hospitalization, Other)
  Sender: FDA-Public Use
  Company Number: US-ROCHE-662558

PATIENT
  Age: 18 Year
  Sex: Male

DRUGS (1)
  1. ROCEPHIN [Suspect]
     Indication: LYME DISEASE
     Route: 065
     Dates: start: 20081001, end: 20081201

REACTIONS (8)
  - ANGER [None]
  - CHOLELITHIASIS [None]
  - CONFUSIONAL STATE [None]
  - LIVER DISORDER [None]
  - LOSS OF CONSCIOUSNESS [None]
  - MALNUTRITION [None]
  - VOMITING PROJECTILE [None]
  - WEIGHT DECREASED [None]
